FAERS Safety Report 4509052-1 (Version None)
Quarter: 2004Q3

REPORT INFORMATION
  Report Type: 
  Country: None (occurrence: None)
  Receive Date: 20040928
  Receipt Date: 20040618
  Transmission Date: 20050211
  Serious: No
  Sender: FDA-Public Use
  Company Number: 04P-163-0264228-00

PATIENT
  Age: 76 Year
  Sex: Female
  Weight: 90.7194 kg

DRUGS (10)
  1. HUMIRA [Suspect]
     Indication: RHEUMATOID ARTHRITIS
     Dosage: 40 MG, 1 IN 2 WK, SUBCUTANEOUS
     Route: 058
     Dates: start: 20040201
  2. PREDNISONE [Concomitant]
  3. METHOTREXATE [Concomitant]
  4. ROFECOXIB [Concomitant]
  5. LEVOTHYROXINE SODIUM [Concomitant]
  6. TOCOPHEROL CONCENTRATE CAP [Concomitant]
  7. ASCORBIC ACID [Concomitant]
  8. VITAMIN B COMPLEX CAP [Concomitant]
  9. CALCIUM CARBONATE [Concomitant]
  10. FOLIC ACID [Concomitant]

REACTIONS (1)
  - TREMOR [None]
